FAERS Safety Report 16929091 (Version 1)
Quarter: 2019Q4

REPORT INFORMATION
  Report Type: Spontaneous
  Country: US (occurrence: US)
  Receive Date: 20191017
  Receipt Date: 20191017
  Transmission Date: 20200122
  Serious: Yes (Other)
  Sender: FDA-Public Use
  Company Number: US-GLAND PHARMA LIMITED-2075768

PATIENT
  Sex: Male
  Weight: 3.3 kg

DRUGS (2)
  1. LEVETIRACETAM REGIMEN [Suspect]
     Active Substance: LEVETIRACETAM
     Route: 042
  2. LEVETIRACETAM. [Suspect]
     Active Substance: LEVETIRACETAM
     Indication: BENIGN FAMILIAL NEONATAL CONVULSIONS
     Route: 042

REACTIONS (1)
  - Drug ineffective for unapproved indication [Unknown]
